FAERS Safety Report 4325866-5 (Version None)
Quarter: 2004Q1

REPORT INFORMATION
  Report Type: 
  Country: None (occurrence: None)
  Receive Date: 20040329
  Receipt Date: 20040212
  Transmission Date: 20041129
  Serious: Yes (Hospitalization, Disabling)
  Sender: FDA-Public Use
  Company Number: US-MERCK-0402USA00997

PATIENT
  Age: 37 Year
  Sex: Female
  Weight: 82 kg

DRUGS (3)
  1. INVANZ [Suspect]
     Indication: ABDOMINAL ABSCESS
     Route: 041
     Dates: start: 20031101
  2. DIFLUCAN [Concomitant]
     Indication: ABDOMINAL ABSCESS
     Route: 048
     Dates: start: 20031110
  3. PROTONIX [Concomitant]
     Indication: PEPTIC ULCER
     Route: 048
     Dates: start: 20031222

REACTIONS (1)
  - DEEP VEIN THROMBOSIS [None]
